FAERS Safety Report 7628155-6 (Version None)
Quarter: 2011Q3

REPORT INFORMATION
  Report Type: 
  Country: None (occurrence: None)
  Receive Date: 20110720
  Receipt Date: 20110720
  Transmission Date: 20111222
  Serious: Yes (Hospitalization, Other)
  Sender: FDA-Public Use
  Company Number: None

PATIENT
  Sex: Female
  Weight: 81.6475 kg

DRUGS (1)
  1. KARIVA [Suspect]
     Indication: CONTRACEPTION
     Dosage: 1 PER DAY PO
     Route: 048
     Dates: start: 20100615, end: 20101208

REACTIONS (6)
  - MENORRHAGIA [None]
  - ASTHENIA [None]
  - BLOOD IRON DECREASED [None]
  - HAEMATOCRIT [None]
  - HAEMATOCRIT DECREASED [None]
  - HAEMOGLOBIN DECREASED [None]
